FAERS Safety Report 10026737 (Version 1)
Quarter: 2014Q1

REPORT INFORMATION
  Report Type: Spontaneous
  Country: JP (occurrence: None)
  Receive Date: 20140318
  Receipt Date: 20140318
  Transmission Date: 20141002
  Serious: Yes (Death)
  Sender: FDA-Public Use
  Company Number: JP-014959

PATIENT
  Age: 73 Year
  Sex: Male

DRUGS (1)
  1. DEGARELIX [Suspect]
     Indication: PROSTATE CANCER
     Dates: start: 20140124, end: 20140124

REACTIONS (2)
  - Intentional drug misuse [None]
  - Cardiac failure [None]
